FAERS Safety Report 19784727 (Version 1)
Quarter: 2021Q3

REPORT INFORMATION
  Report Type: Spontaneous
  Country: US (occurrence: US)
  Receive Date: 20210901
  Receipt Date: 20210901
  Transmission Date: 20211014
  Serious: Yes (Hospitalization)
  Sender: FDA-Public Use
  Company Number: None

PATIENT
  Sex: Female

DRUGS (1)
  1. NIVESTYM [Suspect]
     Active Substance: FILGRASTIM-AAFI
     Indication: NEOPLASM
     Dosage: ?          OTHER FREQUENCY:NIGHTLY 10DAYS;?
     Route: 058
     Dates: start: 20210614

REACTIONS (1)
  - Lymphoma [None]
